FAERS Safety Report 15253268 (Version 1)
Quarter: 2018Q3

REPORT INFORMATION
  Report Type: Spontaneous
  Country: US (occurrence: US)
  Receive Date: 20180807
  Receipt Date: 20180807
  Transmission Date: 20181010
  Serious: Yes (Death, Other)
  Sender: FDA-Public Use
  Company Number: PHHY2018US060206

PATIENT
  Age: 9 Year
  Sex: Male

DRUGS (6)
  1. IFOSFAMIDE. [Suspect]
     Active Substance: IFOSFAMIDE
     Indication: RHABDOID TUMOUR
     Route: 065
  2. CYCLOPHOSPHAMIDE. [Suspect]
     Active Substance: CYCLOPHOSPHAMIDE
     Indication: RHABDOID TUMOUR
     Route: 065
  3. CARBOPLATIN. [Suspect]
     Active Substance: CARBOPLATIN
     Indication: RHABDOID TUMOUR
     Route: 065
  4. ETOPOSIDE. [Suspect]
     Active Substance: ETOPOSIDE
     Indication: RHABDOID TUMOUR
     Route: 065
  5. VINCRISTINE [Suspect]
     Active Substance: VINCRISTINE
     Indication: RHABDOID TUMOUR
     Route: 065
  6. DOXORUBICIN [Suspect]
     Active Substance: DOXORUBICIN
     Indication: RHABDOID TUMOUR
     Route: 065

REACTIONS (9)
  - Therapeutic response decreased [Unknown]
  - Malignant neoplasm progression [Fatal]
  - Nausea [Unknown]
  - Vomiting [Unknown]
  - Pancytopenia [Unknown]
  - Cystitis haemorrhagic [Unknown]
  - Neurotoxicity [Unknown]
  - Rhabdoid tumour [Fatal]
  - Fanconi syndrome [Unknown]
